FAERS Safety Report 7708092-9 (Version None)
Quarter: 2011Q3

REPORT INFORMATION
  Report Type: 
  Country: None (occurrence: None)
  Receive Date: 20110825
  Receipt Date: 20110816
  Transmission Date: 20111222
  Serious: Yes (Hospitalization)
  Sender: FDA-Public Use
  Company Number: US-BIOGENIDEC-2011BI031483

PATIENT
  Age: 47 Year
  Sex: Female

DRUGS (2)
  1. PAIN MEDICATION (NOS) [Concomitant]
  2. TYSABRI [Suspect]
     Indication: MULTIPLE SCLEROSIS
     Route: 042
     Dates: start: 20080415

REACTIONS (8)
  - ACCIDENTAL OVERDOSE [None]
  - PERSONALITY CHANGE [None]
  - DRUG WITHDRAWAL SYNDROME [None]
  - HAEMATOMA [None]
  - FALL [None]
  - RIB FRACTURE [None]
  - AMNESIA [None]
  - CLAVICLE FRACTURE [None]
